FAERS Safety Report 5028191-2 (Version None)
Quarter: 2006Q2

REPORT INFORMATION
  Report Type: 
  Country: None (occurrence: None)
  Receive Date: 20060613
  Receipt Date: 20060602
  Transmission Date: 20061013
  Serious: Yes (Disabling)
  Sender: FDA-Public Use
  Company Number: 2006072479

PATIENT
  Age: 77 Year
  Sex: Male
  Weight: 63.5036 kg

DRUGS (5)
  1. LYRICA [Suspect]
     Indication: PAIN
     Dosage: 3 IN 1 D
     Dates: start: 20060101, end: 20060101
  2. PROTONIX [Concomitant]
  3. LISINOPRIL [Concomitant]
  4. ONE-A-DAY (ASCORBIC ACID, CYANOCOBALAMIN, ERGOCALCIFEROL, NICOTINAMIDE [Concomitant]
  5. FISH OIL (FISH OIL) [Concomitant]

REACTIONS (7)
  - ABNORMAL BEHAVIOUR [None]
  - DIFFICULTY IN WALKING [None]
  - DIZZINESS [None]
  - DYSSTASIA [None]
  - FEELING DRUNK [None]
  - PAIN IN EXTREMITY [None]
  - THINKING ABNORMAL [None]
